FAERS Safety Report 8520150-8 (Version None)
Quarter: 2012Q3

REPORT INFORMATION
  Report Type: 
  Country: None (occurrence: None)
  Receive Date: 20120719
  Receipt Date: 20120705
  Transmission Date: 20120928
  Serious: Yes (Other)
  Sender: FDA-Public Use
  Company Number: GB-JNJFOC-20110202056

PATIENT
  Age: 37 Year
  Sex: Female

DRUGS (6)
  1. ACETAMINOPHEN AND CODEINE PHOSPHATE [Suspect]
     Indication: SYMPHYSIOLYSIS
     Route: 048
  2. BUTRANS [Suspect]
     Indication: SYMPHYSIOLYSIS
     Route: 062
     Dates: start: 20101215, end: 20101229
  3. ACETAMINOPHEN [Suspect]
     Route: 048
  4. ACETAMINOPHEN [Suspect]
     Indication: SYMPHYSIOLYSIS
     Route: 048
  5. MORPHINE SULFATE [Suspect]
     Indication: SYMPHYSIOLYSIS
     Dates: start: 20100922
  6. CITALOPRAM HYDROBROMIDE [Concomitant]

REACTIONS (3)
  - MATERNAL EXPOSURE DURING PREGNANCY [None]
  - INADEQUATE ANALGESIA [None]
  - FOETAL DEATH [None]
